FAERS Safety Report 5595275-X (Version None)
Quarter: 2008Q1

REPORT INFORMATION
  Report Type: 
  Country: None (occurrence: None)
  Receive Date: 20080117
  Receipt Date: 20080107
  Transmission Date: 20080703
  Serious: Yes (Other)
  Sender: FDA-Public Use
  Company Number: US-PFIZER INC-2008001766

PATIENT
  Age: 55 Year
  Sex: Male

DRUGS (2)
  1. GEODON [Suspect]
  2. ALL OTHER THERAPEUTIC PRODUCTS [Concomitant]

REACTIONS (3)
  - ELECTROCARDIOGRAM QT PROLONGED [None]
  - GENERAL PHYSICAL HEALTH DETERIORATION [None]
  - TUMOUR EXCISION [None]
